FAERS Safety Report 19151305 (Version 2)
Quarter: 2021Q2

REPORT INFORMATION
  Report Type: Report from Study
  Country: None (occurrence: US)
  Receive Date: 20210419
  Receipt Date: 20210421
  Transmission Date: 20210717
  Serious: Yes (Other)
  Sender: FDA-Public Use
  Company Number: US-ABBVIE-21K-163-3853969-00

PATIENT
  Age: 67 Year
  Sex: Female
  Weight: 124.85 kg

DRUGS (15)
  1. MELOXICAM. [Concomitant]
     Active Substance: MELOXICAM
     Indication: RHEUMATOID ARTHRITIS
  2. MONTELUKAST [Concomitant]
     Active Substance: MONTELUKAST SODIUM
     Indication: ASTHMA
  3. PILOCARPINE. [Concomitant]
     Active Substance: PILOCARPINE
     Indication: SJOGREN^S SYNDROME
  4. METHOTREXATE. [Concomitant]
     Active Substance: METHOTREXATE
     Indication: RHEUMATOID ARTHRITIS
  5. PREDNISONE. [Concomitant]
     Active Substance: PREDNISONE
     Indication: RHEUMATOID ARTHRITIS
  6. OXYCODONE [Suspect]
     Active Substance: OXYCODONE
     Indication: PAIN
     Route: 042
     Dates: start: 20210319, end: 20210321
  7. HUMIRA [Suspect]
     Active Substance: ADALIMUMAB
     Indication: RHEUMATOID ARTHRITIS
     Dosage: CITRATE FREE
     Route: 058
     Dates: start: 2014, end: 20210305
  8. OMEPRAZOLE. [Concomitant]
     Active Substance: OMEPRAZOLE
     Indication: GASTROOESOPHAGEAL REFLUX DISEASE
  9. FASENRA [Concomitant]
     Active Substance: BENRALIZUMAB
     Indication: ASTHMA
  10. PRAMIPEXOLE. [Concomitant]
     Active Substance: PRAMIPEXOLE
     Indication: RESTLESS LEGS SYNDROME
  11. VERAPAMIL [Concomitant]
     Active Substance: VERAPAMIL HYDROCHLORIDE
     Indication: CARDIAC FLUTTER
  12. SYMBICORT [Concomitant]
     Active Substance: BUDESONIDE\FORMOTEROL FUMARATE DIHYDRATE
     Indication: ASTHMA
  13. FOLIC ACID. [Concomitant]
     Active Substance: FOLIC ACID
     Indication: PRODUCT USED FOR UNKNOWN INDICATION
  14. MONTELUKAST [Concomitant]
     Active Substance: MONTELUKAST SODIUM
     Indication: HYPERSENSITIVITY
  15. GABAPENTIN. [Concomitant]
     Active Substance: GABAPENTIN
     Indication: NEUROPATHY PERIPHERAL

REACTIONS (5)
  - Arthralgia [Not Recovered/Not Resolved]
  - Intervertebral disc degeneration [Not Recovered/Not Resolved]
  - Arthralgia [Not Recovered/Not Resolved]
  - Hypotension [Recovered/Resolved]
  - Dyspnoea [Recovered/Resolved]

NARRATIVE: CASE EVENT DATE: 2019
